FAERS Safety Report 7025563-1 (Version None)
Quarter: 2010Q4

REPORT INFORMATION
  Report Type: 
  Country: None (occurrence: None)
  Receive Date: 20101003
  Receipt Date: 20100924
  Transmission Date: 20110411
  Serious: Yes (Hospitalization)
  Sender: FDA-Public Use
  Company Number: PHHO2010TW10616

PATIENT
  Sex: Male
  Weight: 73.3 kg

DRUGS (7)
  1. PLACEBO COMP-PLA+ [Suspect]
     Indication: PANCREATIC NEUROENDOCRINE TUMOUR
     Dosage: PLACEBO
     Route: 048
     Dates: start: 20090316, end: 20100613
  2. RAD001C [Suspect]
     Indication: PANCREATIC NEUROENDOCRINE TUMOUR
     Dosage: 10 MG DAILY
     Route: 048
     Dates: start: 20100614, end: 20100703
  3. RAD001C [Suspect]
     Dosage: 5MG DAILY
     Route: 048
     Dates: start: 20100704, end: 20100704
  4. SULPIRIDE [Concomitant]
  5. BROMAZEPAM [Concomitant]
  6. AMILORIDE HCL AND HYDROCHLOROTHIAZIDE [Concomitant]
  7. BISOPROLOL FUMARATE [Concomitant]

REACTIONS (13)
  - AGITATION [None]
  - ALTERED STATE OF CONSCIOUSNESS [None]
  - AMMONIA INCREASED [None]
  - ATROPHY [None]
  - BLOOD BILIRUBIN INCREASED [None]
  - CONCOMITANT DISEASE PROGRESSION [None]
  - FALL [None]
  - HEPATIC ENCEPHALOPATHY [None]
  - LUNG INFILTRATION [None]
  - NERVOUS SYSTEM DISORDER [None]
  - PNEUMONIA [None]
  - PYREXIA [None]
  - TREMOR [None]
